FAERS Safety Report 13660157 (Version 9)
Quarter: 2017Q4

REPORT INFORMATION
  Report Type: Report from Study
  Country: BR (occurrence: BR)
  Receive Date: 20170616
  Receipt Date: 20171227
  Transmission Date: 20180320
  Serious: Yes (Hospitalization)
  Sender: FDA-Public Use
  Company Number: PHHO2017BR009162

PATIENT
  Age: 5 Year
  Sex: Male
  Weight: 18.5 kg

DRUGS (2)
  1. METHOTREXATE. [Suspect]
     Active Substance: METHOTREXATE
     Indication: PRODUCT USED FOR UNKNOWN INDICATION
     Dosage: UNK
     Route: 065
  2. ACZ885 [Suspect]
     Active Substance: CANAKINUMAB
     Dosage: 75 MG, QW4
     Route: 058
     Dates: start: 20160321, end: 20170814

REACTIONS (3)
  - Viral infection [Recovered/Resolved]
  - Histiocytosis haematophagic [Recovered/Resolved]
  - Pneumonia [Recovered/Resolved]

NARRATIVE: CASE EVENT DATE: 20170604
